FAERS Safety Report 8183547-4 (Version None)
Quarter: 2012Q1

REPORT INFORMATION
  Report Type: 
  Country: None (occurrence: None)
  Receive Date: 20120305
  Receipt Date: 20120224
  Transmission Date: 20120608
  Serious: Yes (Hospitalization)
  Sender: FDA-Public Use
  Company Number: JP-ASTRAZENECA-2011SE78715

PATIENT
  Age: 98 Year
  Sex: Female
  Weight: 42 kg

DRUGS (8)
  1. BISOLVON [Concomitant]
     Indication: ASTHMA
     Route: 048
  2. FLAVITAN [Concomitant]
     Indication: HYPOVITAMINOSIS
     Route: 048
  3. SYMBICORT [Suspect]
     Indication: ASTHMA
     Route: 055
     Dates: start: 20101208
  4. FAMOTIDINE [Concomitant]
     Indication: GASTRITIS
     Route: 048
  5. SINGULAIR [Concomitant]
     Indication: ASTHMA
     Route: 048
  6. ALOSENN [Concomitant]
     Indication: CONSTIPATION
     Route: 048
  7. HOKUNALIN:TAPE [Concomitant]
     Indication: ASTHMA
     Route: 062
     Dates: end: 20101216
  8. LEVOTHYROXINE SODIUM [Concomitant]
     Indication: HYPOTHYROIDISM
     Dosage: 25/50 MCG ALTERNATE DAY DOSING
     Route: 048

REACTIONS (2)
  - PNEUMONIA [None]
  - ASTHMA [None]
